FAERS Safety Report 14506817 (Version 2)
Quarter: 2018Q1

REPORT INFORMATION
  Report Type: Spontaneous
  Country: HU (occurrence: HU)
  Receive Date: 20180208
  Receipt Date: 20180214
  Transmission Date: 20180509
  Serious: No
  Sender: FDA-Public Use
  Company Number: HU-PFIZER INC-2018053363

PATIENT
  Age: 64 Year
  Sex: Female

DRUGS (4)
  1. PREDNISONE. [Concomitant]
     Active Substance: PREDNISONE
     Indication: MYCOSIS FUNGOIDES
     Dosage: 6 CYCLES
     Route: 065
  2. CYCLOPHOSPHAMIDE. [Concomitant]
     Active Substance: CYCLOPHOSPHAMIDE
     Indication: MYCOSIS FUNGOIDES
     Dosage: 6 CYCLES
     Route: 065
  3. VINCRISTINE [Concomitant]
     Active Substance: VINCRISTINE
     Indication: MYCOSIS FUNGOIDES
     Dosage: 6 CYCLES
     Route: 065
  4. DOXORUBICIN HCL [Suspect]
     Active Substance: DOXORUBICIN HYDROCHLORIDE
     Indication: MYCOSIS FUNGOIDES
     Dosage: 6 CYCLES
     Route: 065

REACTIONS (1)
  - Product use in unapproved indication [Unknown]
